FAERS Safety Report 7776468-X (Version None)
Quarter: 2011Q3

REPORT INFORMATION
  Report Type: 
  Country: None (occurrence: None)
  Receive Date: 20110926
  Receipt Date: 20110913
  Transmission Date: 20111222
  Serious: Yes (Death, Hospitalization, Other)
  Sender: FDA-Public Use
  Company Number: US-ELI_LILLY_AND_COMPANY-US201007007504

PATIENT
  Sex: Female

DRUGS (13)
  1. FORTEO [Suspect]
     Dosage: 20 UG, QD
  2. ZOCOR [Concomitant]
     Route: 065
  3. XELODA [Concomitant]
     Route: 065
  4. PREDNISONE [Concomitant]
     Route: 065
  5. MYCOPHENOLATE MOFETIL (CELLCEPT) [Concomitant]
     Route: 065
  6. FORTEO [Suspect]
     Indication: OSTEOPOROSIS
     Dosage: 20 UG, DAILY (1/D)
     Dates: start: 20090101
  7. FORTEO [Suspect]
     Dosage: 20 UG, DAILY (1/D)
     Dates: start: 20110101, end: 20110201
  8. FORTEO [Suspect]
     Dosage: 20 UG, QD
     Route: 065
  9. LYRICA [Concomitant]
     Route: 065
  10. PROCHLORPERAZINE [Concomitant]
     Indication: ABDOMINAL DISCOMFORT
     Route: 065
  11. AVAPRO [Concomitant]
     Route: 065
  12. PROGRAF [Concomitant]
     Dosage: 1 MG, OTHER
     Route: 065
  13. BACTRIM [Concomitant]
     Route: 065

REACTIONS (10)
  - GASTROINTESTINAL DISORDER [None]
  - COLONIC OBSTRUCTION [None]
  - SEPSIS [None]
  - DEATH [None]
  - NERVOUSNESS [None]
  - COLON CANCER [None]
  - BLOOD PRESSURE INCREASED [None]
  - URINARY TRACT INFECTION [None]
  - ABDOMINAL PAIN UPPER [None]
  - RECTAL CANCER [None]
